FAERS Safety Report 9146267 (Version 1)
Quarter: 2013Q1

REPORT INFORMATION
  Report Type: Spontaneous
  Country: IT (occurrence: IT)
  Receive Date: 20130307
  Receipt Date: 20130307
  Transmission Date: 20140127
  Serious: Yes (Life-Threatening)
  Sender: FDA-Public Use
  Company Number: PHHY2013IT022173

PATIENT
  Sex: Male

DRUGS (3)
  1. BROMAZEPAM [Suspect]
  2. ALLOPURINOL [Suspect]
  3. BISOPROLOL [Suspect]

REACTIONS (3)
  - Sopor [Recovered/Resolved]
  - Diarrhoea [Recovered/Resolved]
  - Vomiting [Recovered/Resolved]
